FAERS Safety Report 5841097-1 (Version None)
Quarter: 2008Q3

REPORT INFORMATION
  Report Type: 
  Country: None (occurrence: None)
  Receive Date: 20080811
  Receipt Date: 20080811
  Transmission Date: 20090109
  Serious: No
  Sender: FDA-Public Use
  Company Number: None

PATIENT
  Sex: Female
  Weight: 82.5547 kg

DRUGS (2)
  1. PAXIL [Suspect]
     Indication: ANXIETY DISORDER
     Dosage: 12.5MG 1 QID  25 MG 1 QID
  2. PAXIL [Suspect]
     Indication: DEPRESSION
     Dosage: 12.5MG 1 QID  25 MG 1 QID

REACTIONS (7)
  - BLOOD GLUCOSE DECREASED [None]
  - CONTRAINDICATION TO MEDICAL TREATMENT [None]
  - DIZZINESS [None]
  - HYPERSENSITIVITY [None]
  - NAUSEA [None]
  - RASH [None]
  - VOMITING [None]
